FAERS Safety Report 22319976 (Version 1)
Quarter: 2023Q2

REPORT INFORMATION
  Report Type: Spontaneous
  Country: US (occurrence: US)
  Receive Date: 20230515
  Receipt Date: 20230515
  Transmission Date: 20230721
  Serious: No
  Sender: FDA-Public Use
  Company Number: US-PFIZER INC-PV202300080497

PATIENT
  Age: 70 Year
  Sex: Male

DRUGS (2)
  1. IBRANCE [Suspect]
     Active Substance: PALBOCICLIB
     Indication: Connective tissue neoplasm
     Dosage: 125 MG
  2. IBRANCE [Suspect]
     Active Substance: PALBOCICLIB
     Indication: Soft tissue neoplasm

REACTIONS (4)
  - Dry mouth [Unknown]
  - Pain [Unknown]
  - Hernia [Unknown]
  - Off label use [Unknown]
